FAERS Safety Report 12834404 (Version 1)
Quarter: 2016Q4

REPORT INFORMATION
  Report Type: Spontaneous
  Country: TW (occurrence: TW)
  Receive Date: 20161010
  Receipt Date: 20161010
  Transmission Date: 20170207
  Serious: Yes (Hospitalization)
  Sender: FDA-Public Use
  Company Number: PHHY2016TW137515

PATIENT
  Age: 31 Year
  Sex: Male

DRUGS (3)
  1. CLARITHROMYCIN. [Suspect]
     Active Substance: CLARITHROMYCIN
     Indication: PEPTIC ULCER HELICOBACTER
     Dosage: 500 MG, BID
     Route: 065
  2. OMEPRAZOLE. [Suspect]
     Active Substance: OMEPRAZOLE
     Indication: PEPTIC ULCER HELICOBACTER
     Dosage: 20 MG, BID
     Route: 065
  3. AMOXICILLIN. [Suspect]
     Active Substance: AMOXICILLIN
     Indication: PEPTIC ULCER HELICOBACTER
     Dosage: 1000 MG, BID
     Route: 065

REACTIONS (1)
  - Chronic sinusitis [Recovered/Resolved]
